FAERS Safety Report 23724805 (Version 1)
Quarter: 2024Q2

REPORT INFORMATION
  Report Type: Report from Study
  Country: ES (occurrence: ES)
  Receive Date: 20240409
  Receipt Date: 20240409
  Transmission Date: 20240715
  Serious: Yes (Other)
  Sender: FDA-Public Use
  Company Number: ES-CELLTRION INC.-2024ES008052

PATIENT

DRUGS (1)
  1. INFLIXIMAB [Suspect]
     Active Substance: INFLIXIMAB
     Indication: Spondyloarthropathy
     Dosage: 400 MILLIGRAM
     Route: 042
     Dates: start: 20200605, end: 20210107

REACTIONS (1)
  - Autoimmune demyelinating disease [Recovering/Resolving]

NARRATIVE: CASE EVENT DATE: 20210226
